FAERS Safety Report 20890530 (Version 2)
Quarter: 2022Q4

REPORT INFORMATION
  Report Type: Spontaneous
  Country: US (occurrence: US)
  Receive Date: 20220530
  Receipt Date: 20221117
  Transmission Date: 20230112
  Serious: Yes (Other)
  Sender: FDA-Public Use
  Company Number: US-BRISTOL-MYERS SQUIBB COMPANY-2022-044421

PATIENT
  Age: 43 Year
  Sex: Female

DRUGS (8)
  1. SPRYCEL [Suspect]
     Active Substance: DASATINIB
     Indication: Chronic myeloid leukaemia
     Dosage: DOSE : UNAVAILABLE;     FREQ : UNAVAILABLE
     Route: 065
  2. SPRYCEL [Suspect]
     Active Substance: DASATINIB
     Dosage: DOSE: (1) TABLET; FREQ: UNAVAILABLE (NOT PROVIDED)
     Route: 048
  3. VITAMIN B12 [Concomitant]
     Active Substance: CYANOCOBALAMIN
     Indication: Product used for unknown indication
     Route: 065
  4. MAGNESIUM [MAGNESIUM HYDROXIDE] [Concomitant]
     Indication: Product used for unknown indication
     Route: 065
  5. VITAMIN C [Concomitant]
     Active Substance: ASCORBIC ACID
     Indication: Product used for unknown indication
     Route: 065
  6. ERGOCALCIFEROL [Concomitant]
     Active Substance: ERGOCALCIFEROL
     Indication: Product used for unknown indication
     Route: 065
  7. VITAMIN B COMPLEX [Concomitant]
     Active Substance: CYANOCOBALAMIN\DEXPANTHENOL\NIACINAMIDE\PYRIDOXINE HYDROCHLORIDE\RIBOFLAVIN 5^-PHOSPHATE SODIUM\THIA
     Indication: Product used for unknown indication
     Route: 065
  8. ICLUSIG [Concomitant]
     Active Substance: PONATINIB
     Indication: Product used for unknown indication
     Route: 065

REACTIONS (2)
  - Leukaemia [Unknown]
  - Drug ineffective [Unknown]

NARRATIVE: CASE EVENT DATE: 20220517
